FAERS Safety Report 8781518 (Version 2)
Quarter: 2012Q4

REPORT INFORMATION
  Report Type: 
  Country: DE (occurrence: DE)
  Receive Date: 20120913
  Receipt Date: 20120920
  Transmission Date: 20130627
  Serious: Yes (Death)
  Sender: FDA-Public Use
  Company Number: DE-UCBSA-065294

PATIENT
  Age: 80 Year
  Sex: Female
  Weight: 60 kg

DRUGS (5)
  1. VIMPAT [Suspect]
     Indication: STATUS EPILEPTICUS
     Dosage: 2 X 100 MG
     Route: 042
     Dates: start: 2012, end: 2012
  2. VIMPAT [Suspect]
     Indication: STATUS EPILEPTICUS
     Dosage: 400 MG/DAY
     Dates: start: 2012, end: 20120302
  3. KEPPRA [Suspect]
     Indication: STATUS EPILEPTICUS
     Dates: start: 2012, end: 20120302
  4. VALPROIC ACID [Concomitant]
     Indication: STATUS EPILEPTICUS
     Dates: start: 2012, end: 20120302
  5. BENZODIAZEPINE [Concomitant]
     Indication: STATUS EPILEPTICUS
     Dates: start: 2012, end: 20120302

REACTIONS (2)
  - Lung infection [Fatal]
  - Urinary tract infection [Unknown]
